FAERS Safety Report 14115140 (Version 1)
Quarter: 2017Q4

REPORT INFORMATION
  Report Type: Spontaneous
  Country: US (occurrence: US)
  Receive Date: 20171023
  Receipt Date: 20171023
  Transmission Date: 20180321
  Serious: Yes (Other)
  Sender: FDA-Public Use
  Company Number: US-BAYER-2017-200014

PATIENT
  Age: 30 Year
  Sex: Female

DRUGS (1)
  1. MIRENA [Suspect]
     Active Substance: LEVONORGESTREL
     Dosage: 20 MCG/24HR, CONT
     Route: 015
     Dates: start: 200807

REACTIONS (7)
  - Visual impairment [None]
  - Vomiting [None]
  - Nausea [None]
  - Headache [None]
  - Device use issue [None]
  - Intracranial pressure increased [None]
  - Tinnitus [None]

NARRATIVE: CASE EVENT DATE: 201706
